FAERS Safety Report 7582362-X (Version None)
Quarter: 2011Q2

REPORT INFORMATION
  Report Type: 
  Country: None (occurrence: None)
  Receive Date: 20110623
  Receipt Date: 20110609
  Transmission Date: 20111010
  Serious: Yes (Other)
  Sender: FDA-Public Use
  Company Number: AUR-APL-2011-02003

PATIENT
  Age: 60 Year
  Sex: Female

DRUGS (7)
  1. GLICLAZIDE (GLICLAZIDE) [Concomitant]
  2. DIOVAN HCT [Concomitant]
  3. CEFTRIAXONE [Suspect]
     Indication: PRODUCT USED FOR UNKNOWN INDICATION
     Dosage: INTRAMUSCULAR
     Route: 030
     Dates: start: 20110504, end: 20110511
  4. ATORVASTATIN CALCIUM [Concomitant]
  5. AMLODIPOINE (AMLODIPINE) [Concomitant]
  6. METFORMIN HCL [Concomitant]
  7. TICLOPIDINE HYDROCHLORIDE [Concomitant]

REACTIONS (3)
  - PRURITUS [None]
  - LIP OEDEMA [None]
  - URTICARIA [None]
